FAERS Safety Report 23856449 (Version 1)
Quarter: 2024Q2

REPORT INFORMATION
  Report Type: Other
  Country: JP (occurrence: None)
  Receive Date: 20240515
  Receipt Date: 20240515
  Transmission Date: 20240716
  Serious: Yes (Other)
  Sender: FDA-Public Use
  Company Number: JP-ROCHE-3560897

PATIENT

DRUGS (2)
  1. ATEZOLIZUMAB [Suspect]
     Active Substance: ATEZOLIZUMAB
     Indication: Hepatocellular carcinoma
     Route: 042
  2. BEVACIZUMAB [Suspect]
     Active Substance: BEVACIZUMAB
     Indication: Hepatocellular carcinoma
     Route: 042

REACTIONS (21)
  - Decreased appetite [Unknown]
  - Nausea [Unknown]
  - Fatigue [Unknown]
  - Hypertension [Unknown]
  - Leukopenia [Unknown]
  - Anaemia [Unknown]
  - Thrombocytopenia [Unknown]
  - Blood bilirubin increased [Unknown]
  - Alanine aminotransferase increased [Unknown]
  - Blood albumin decreased [Unknown]
  - Blood creatinine increased [Unknown]
  - Proteinuria [Unknown]
  - Adrenal insufficiency [Unknown]
  - Infusion related reaction [Unknown]
  - Hepatic encephalopathy [Unknown]
  - Gastrointestinal haemorrhage [Unknown]
  - Rash [Unknown]
  - Diarrhoea [Unknown]
  - Colitis [Unknown]
  - Ascites [Unknown]
  - Hypothyroidism [Unknown]
